FAERS Safety Report 4293863-4 (Version None)
Quarter: 2004Q1

REPORT INFORMATION
  Report Type: 
  Country: None (occurrence: None)
  Receive Date: 20040210
  Receipt Date: 20040130
  Transmission Date: 20041129
  Serious: Yes (Death, Hospitalization)
  Sender: FDA-Public Use
  Company Number: USA-2004-0012872

PATIENT
  Sex: Male

DRUGS (2)
  1. OXYCONTIN [Suspect]
     Dosage: MG
  2. COUMADIN [Suspect]
     Indication: ANTICOAGULANT THERAPY
     Dosage: MG

REACTIONS (2)
  - DRUG LEVEL FLUCTUATING [None]
  - THROMBOSIS [None]
